FAERS Safety Report 7643667-7 (Version None)
Quarter: 2011Q3

REPORT INFORMATION
  Report Type: 
  Country: None (occurrence: None)
  Receive Date: 20110729
  Receipt Date: 20110719
  Transmission Date: 20111222
  Serious: Yes (Other)
  Sender: FDA-Public Use
  Company Number: PHHY2011CA55197

PATIENT
  Sex: Female

DRUGS (1)
  1. SANDOSTATIN LAR [Suspect]
     Indication: PANCREATITIS CHRONIC
     Dosage: 20 MG, ONCE IN A MONTH
     Route: 030
     Dates: start: 20110620

REACTIONS (6)
  - INJECTION SITE PAIN [None]
  - NAUSEA [None]
  - DYSPNOEA [None]
  - ABDOMINAL DISTENSION [None]
  - ABDOMINAL PAIN UPPER [None]
  - ASTHENIA [None]
